FAERS Safety Report 4921269-0 (Version None)
Quarter: 2006Q1

REPORT INFORMATION
  Report Type: 
  Country: None (occurrence: None)
  Receive Date: 20060224
  Receipt Date: 20060216
  Transmission Date: 20060701
  Serious: Yes (Hospitalization)
  Sender: FDA-Public Use
  Company Number: FR-JNJFOC-20060204292

PATIENT
  Age: 16 Year
  Sex: Female
  Weight: 44 kg

DRUGS (6)
  1. REMICADE [Suspect]
     Route: 042
  2. REMICADE [Suspect]
     Dosage: ONE INFUSION
     Route: 042
  3. REMICADE [Suspect]
     Dosage: ONE INFUSION
     Route: 042
  4. IMUREL [Suspect]
     Route: 048
  5. CIFLOX [Concomitant]
     Route: 048
  6. ZELITREX [Concomitant]
     Route: 048

REACTIONS (5)
  - ARTHRALGIA [None]
  - INFLAMMATION [None]
  - PYREXIA [None]
  - THROMBOCYTHAEMIA [None]
  - TYPE IV HYPERSENSITIVITY REACTION [None]
